FAERS Safety Report 4466023-1 (Version None)
Quarter: 2004Q3

REPORT INFORMATION
  Report Type: 
  Country: None (occurrence: None)
  Receive Date: 20040930
  Receipt Date: 20040920
  Transmission Date: 20050211
  Serious: Yes (Disabling)
  Sender: FDA-Public Use
  Company Number: 2004UW19854

PATIENT
  Sex: Male

DRUGS (1)
  1. ATACAND [Suspect]

REACTIONS (1)
  - ALOPECIA [None]
